FAERS Safety Report 10967119 (Version 1)
Quarter: 2015Q1

REPORT INFORMATION
  Report Type: Spontaneous
  Country: ZA (occurrence: ZA)
  Receive Date: 20150330
  Receipt Date: 20150330
  Transmission Date: 20150721
  Serious: Yes (Other)
  Sender: FDA-Public Use
  Company Number: ZA-SA-2015SA037973

PATIENT
  Age: 50 Year
  Sex: Male

DRUGS (2)
  1. CIPROFLOXACIN. [Concomitant]
     Active Substance: CIPROFLOXACIN
     Indication: URINARY TRACT INFECTION
     Route: 048
  2. STILNOX MR [Suspect]
     Active Substance: ZOLPIDEM TARTRATE
     Indication: INSOMNIA
     Route: 048
     Dates: start: 20150211

REACTIONS (3)
  - Road traffic accident [Recovered/Resolved]
  - Somnolence [Recovered/Resolved]
  - Amnesia [Recovered/Resolved]

NARRATIVE: CASE EVENT DATE: 20150214
